FAERS Safety Report 15245131 (Version 1)
Quarter: 2018Q3

REPORT INFORMATION
  Report Type: Spontaneous
  Country: US (occurrence: US)
  Receive Date: 20180713
  Receipt Date: 20180713
  Transmission Date: 20181010
  Serious: Yes (Life-Threatening, Hospitalization, Disabling)
  Sender: FDA-Public Use
  Company Number: None

PATIENT
  Age: 74 Year
  Sex: Male
  Weight: 63.5 kg

DRUGS (12)
  1. FUROSEMIDE. [Concomitant]
     Active Substance: FUROSEMIDE
  2. ESTER C [Concomitant]
  3. ASPIRIN. [Concomitant]
     Active Substance: ASPIRIN
  4. RENAVIT [Concomitant]
  5. ROSUVASTATIN 40MG TAB [Suspect]
     Active Substance: ROSUVASTATIN
     Dates: start: 20171113, end: 20180122
  6. CALCIUM 500MG WITH D3 [Concomitant]
  7. FINASTERIDE. [Concomitant]
     Active Substance: FINASTERIDE
  8. LYRICA [Concomitant]
     Active Substance: PREGABALIN
  9. FOLIC ACID. [Concomitant]
     Active Substance: FOLIC ACID
  10. LEFLUNOMIDE. [Concomitant]
     Active Substance: LEFLUNOMIDE
  11. PAIN RELIEF PM EXTRA STRENGTH [Concomitant]
     Active Substance: ACETAMINOPHEN\DIPHENHYDRAMINE HYDROCHLORIDE
  12. PREGABALIN. [Concomitant]
     Active Substance: PREGABALIN

REACTIONS (3)
  - Rhabdomyolysis [None]
  - Renal failure [None]
  - Heart injury [None]

NARRATIVE: CASE EVENT DATE: 20180125
